FAERS Safety Report 5570063-9 (Version None)
Quarter: 2007Q4

REPORT INFORMATION
  Report Type: 
  Country: None (occurrence: None)
  Receive Date: 20071218
  Receipt Date: 20071129
  Transmission Date: 20080405
  Serious: Yes (Hospitalization)
  Sender: FDA-Public Use
  Company Number: S07-SWI-06242-01

PATIENT
  Age: 80 Year
  Sex: Female

DRUGS (5)
  1. ESCITALOPRAM [Suspect]
     Indication: DEPRESSION
     Dosage: 10 MG ONCE PO
     Route: 048
     Dates: start: 20071031, end: 20071031
  2. DEANXIT [Suspect]
     Indication: DEPRESSION
  3. ZOCOR [Concomitant]
  4. SYMFONA N (GINGKO BILOBA EXTRACT) [Concomitant]
  5. LORAZEPAM [Concomitant]

REACTIONS (9)
  - AMNESIA [None]
  - DIZZINESS [None]
  - FEELING ABNORMAL [None]
  - INTENTIONAL DRUG MISUSE [None]
  - NAUSEA [None]
  - NEUROLOGICAL EXAMINATION ABNORMAL [None]
  - SYNCOPE [None]
  - TREMOR [None]
  - VENTRICULAR HYPOKINESIA [None]
